FAERS Safety Report 20185709 (Version 22)
Quarter: 2022Q2

REPORT INFORMATION
  Report Type: Report from Study
  Country: GB (occurrence: GB)
  Receive Date: 20211215
  Receipt Date: 20220630
  Transmission Date: 20220721
  Serious: Yes (Death, Hospitalization, Other)
  Sender: FDA-Public Use
  Company Number: GB-CELLTRION INC.-2021GB016668

PATIENT

DRUGS (231)
  1. TRASTUZUMAB [Suspect]
     Active Substance: TRASTUZUMAB
     Indication: HER2 positive breast cancer
     Dosage: 400 MG (LOADING DOSE), Q3W
     Route: 042
     Dates: start: 20150513, end: 20150513
  2. TRASTUZUMAB [Suspect]
     Active Substance: TRASTUZUMAB
     Indication: Breast cancer metastatic
     Dosage: 300 MG, Q3W EVERY 3 WEEKS (DOSE FORM: 230; 300 MILLIGRAM, 3XW/ START DATE: 08-JAN-2016)
     Route: 042
     Dates: start: 20150603, end: 20150804
  3. TRASTUZUMAB [Suspect]
     Active Substance: TRASTUZUMAB
     Dosage: 300 MG (DOSE FORM: 230)
     Route: 042
  4. TRASTUZUMAB [Suspect]
     Active Substance: TRASTUZUMAB
     Dosage: 275 MG, Q3W EVERY 3 WEEKS (DOSE FORM: 230; 400 MILLIGRAM, 3XW/ START DATE: 13-MAY-2015)
     Route: 042
     Dates: start: 20150818, end: 20151211
  5. TRASTUZUMAB [Suspect]
     Active Substance: TRASTUZUMAB
     Dosage: 300 MG, Q3W EVERY 3 WEEKS (DOSE FORM: 230)
     Route: 042
     Dates: start: 20160108, end: 20160405
  6. TRASTUZUMAB [Suspect]
     Active Substance: TRASTUZUMAB
     Dosage: 300 MG, Q3W
     Route: 042
     Dates: start: 20150603, end: 20150828
  7. TRASTUZUMAB [Suspect]
     Active Substance: TRASTUZUMAB
     Dosage: 275 MILLIGRAM, Q3W / START DATE:18-SEP-2015; DOSE FORM: 230
     Route: 042
     Dates: start: 20150918, end: 20151211
  8. TRASTUZUMAB [Suspect]
     Active Substance: TRASTUZUMAB
     Dosage: 480 MG, EVERY 1 WEEK (DOSE FORM: 230; 160 MILLIGRAM, Q3W/ START DATE: 10-MAY-2017)
     Route: 042
     Dates: end: 20180808
  9. TRASTUZUMAB [Suspect]
     Active Substance: TRASTUZUMAB
     Dosage: 480 MG, EVERY 1 WEEK (DOSE FORM: 230; 160 MILLIGRAM, Q3W/ START DATE: 10-MAY-2017)
     Route: 042
     Dates: end: 20180808
  10. TRASTUZUMAB [Suspect]
     Active Substance: TRASTUZUMAB
     Dosage: 480 MG, EVERY 1 WEEK (DOSE FORM: 230; 160 MILLIGRAM, Q3W/ START DATE: 10-MAY-2017)
     Route: 042
     Dates: end: 20180808
  11. TRASTUZUMAB [Suspect]
     Active Substance: TRASTUZUMAB
     Dosage: 275 MG, EVERY 2 WEEKS (DOSE FORM: 230; 275 MILLIGRAM, Q3W / START DATE:18-SEP-2015)
     Route: 042
     Dates: start: 20150918, end: 20151211
  12. TRASTUZUMAB [Suspect]
     Active Substance: TRASTUZUMAB
     Dosage: 275 MG, EVERY 2 WEEKS (DOSE FORM: 230; 275 MILLIGRAM, Q3W / START DATE:18-SEP-2015)
     Route: 042
     Dates: start: 20150918, end: 20151211
  13. TRASTUZUMAB [Suspect]
     Active Substance: TRASTUZUMAB
     Dosage: 275 MG, EVERY 2 WEEKS (DOSE FORM: 230; 275 MILLIGRAM, Q3W / START DATE:18-SEP-2015)
     Route: 042
     Dates: start: 20150918, end: 20151211
  14. TRASTUZUMAB [Suspect]
     Active Substance: TRASTUZUMAB
     Dosage: 184 MG, EVERY 2 WEEKS (DOSE FORM: 230; 184 MILLIGRAM, Q3W/ START DATE: 26-APR-2016)
     Route: 042
     Dates: end: 20160720
  15. TRASTUZUMAB [Suspect]
     Active Substance: TRASTUZUMAB
     Dosage: 184 MG, EVERY 2 WEEKS (DOSE FORM: 230; 184 MILLIGRAM, Q3W/ START DATE: 26-APR-2016)
     Route: 042
     Dates: end: 20160720
  16. TRASTUZUMAB [Suspect]
     Active Substance: TRASTUZUMAB
     Dosage: 184 MG, EVERY 2 WEEKS (DOSE FORM: 230; 184 MILLIGRAM, Q3W/ START DATE: 26-APR-2016)
     Route: 042
     Dates: end: 20160720
  17. TRASTUZUMAB [Suspect]
     Active Substance: TRASTUZUMAB
     Dosage: 300 MG, EVERY 2 WEEKS (DOSE FORM: 230; 300 MILLIGRAM, Q3W/ START DATE: 03-JUN-2015)
     Route: 042
     Dates: start: 20150603, end: 20150828
  18. TRASTUZUMAB [Suspect]
     Active Substance: TRASTUZUMAB
     Dosage: 300 MG, EVERY 2 WEEKS (DOSE FORM: 230; 300 MILLIGRAM, Q3W/ START DATE: 03-JUN-2015)
     Route: 042
     Dates: start: 20150603, end: 20150828
  19. TRASTUZUMAB [Suspect]
     Active Substance: TRASTUZUMAB
     Dosage: 300 MG, EVERY 2 WEEKS (DOSE FORM: 230; 300 MILLIGRAM, Q3W/ START DATE: 03-JUN-2015)
     Route: 042
     Dates: start: 20150603, end: 20150828
  20. TRASTUZUMAB [Suspect]
     Active Substance: TRASTUZUMAB
     Dosage: 900 MG, EVERY 1 WEEK (DOSE FORM: 230; 300 MILLIGRAM, 3XW// STAT DATE: 03-JUN-2015)
     Route: 042
     Dates: end: 20150804
  21. TRASTUZUMAB [Suspect]
     Active Substance: TRASTUZUMAB
     Dosage: 900 MG, EVERY 1 WEEK (DOSE FORM: 230; 300 MILLIGRAM, 3XW// STAT DATE: 03-JUN-2015)
     Route: 042
     Dates: end: 20150804
  22. TRASTUZUMAB [Suspect]
     Active Substance: TRASTUZUMAB
     Dosage: 900 MG, EVERY 1 WEEK (DOSE FORM: 230; 300 MILLIGRAM, 3XW// STAT DATE: 03-JUN-2015)
     Route: 042
     Dates: end: 20150804
  23. TRASTUZUMAB [Suspect]
     Active Substance: TRASTUZUMAB
     Dosage: 300 MG (DOSE FORM: 230)
     Route: 042
  24. TRASTUZUMAB [Suspect]
     Active Substance: TRASTUZUMAB
     Dosage: 300 MG (DOSE FORM: 230)
     Route: 042
  25. TRASTUZUMAB [Suspect]
     Active Substance: TRASTUZUMAB
     Dosage: 300 MG, Q3W EVERY 3 WEEKS (DOSE FORM: 230; 300 MILLIGRAM, 3XW/ START DATE: 08-JAN-2016)
     Route: 042
     Dates: start: 20150603, end: 20150804
  26. TRASTUZUMAB [Suspect]
     Active Substance: TRASTUZUMAB
     Dosage: 300 MG, Q3W EVERY 3 WEEKS (DOSE FORM: 230; 300 MILLIGRAM, 3XW/ START DATE: 08-JAN-2016)
     Route: 042
     Dates: start: 20150603, end: 20150804
  27. TRASTUZUMAB [Suspect]
     Active Substance: TRASTUZUMAB
     Dosage: 900 MG, EVERY 1 WEEK (DOSE FORM: 230; 300 MILLIGRAM, 3XW// STAT DATE: 03-JUN-2015)
     Route: 042
     Dates: end: 20150604
  28. TRASTUZUMAB [Suspect]
     Active Substance: TRASTUZUMAB
     Dosage: 900 MG, EVERY 1 WEEK (DOSE FORM: 230; 300 MILLIGRAM, 3XW// STAT DATE: 03-JUN-2015)
     Route: 042
     Dates: end: 20150604
  29. TRASTUZUMAB [Suspect]
     Active Substance: TRASTUZUMAB
     Dosage: 900 MG, EVERY 1 WEEK (DOSE FORM: 230; 300 MILLIGRAM, 3XW// STAT DATE: 03-JUN-2015)
     Route: 042
     Dates: end: 20150604
  30. TRASTUZUMAB [Suspect]
     Active Substance: TRASTUZUMAB
     Dosage: 400 MG, EVERY 1 CYCLE (DOSE FORM: 230; LOADING DOSE)
     Route: 041
     Dates: start: 20150513, end: 20150513
  31. TRASTUZUMAB [Suspect]
     Active Substance: TRASTUZUMAB
     Dosage: 400 MG, EVERY 1 CYCLE (DOSE FORM: 230; LOADING DOSE)
     Route: 041
     Dates: start: 20150513, end: 20150513
  32. TRASTUZUMAB [Suspect]
     Active Substance: TRASTUZUMAB
     Dosage: 400 MG, EVERY 1 CYCLE (DOSE FORM: 230; LOADING DOSE)
     Route: 041
     Dates: start: 20150513, end: 20150513
  33. TRASTUZUMAB [Suspect]
     Active Substance: TRASTUZUMAB
     Dosage: 275 MG, Q3W EVERY 3 WEEKS (DOSE FORM: 230; 400 MILLIGRAM, 3XW/ START DATE: 13-MAY-2015)
     Route: 042
     Dates: start: 20150818, end: 20151211
  34. TRASTUZUMAB [Suspect]
     Active Substance: TRASTUZUMAB
     Dosage: 275 MG, Q3W EVERY 3 WEEKS (DOSE FORM: 230; 400 MILLIGRAM, 3XW/ START DATE: 13-MAY-2015)
     Route: 042
     Dates: start: 20150818, end: 20151211
  35. TRASTUZUMAB [Suspect]
     Active Substance: TRASTUZUMAB
     Dosage: 300 MG, Q3W EVERY 3 WEEKS (DOSE FORM: 230)
     Route: 042
     Dates: start: 20160108, end: 20160405
  36. TRASTUZUMAB [Suspect]
     Active Substance: TRASTUZUMAB
     Dosage: 300 MG, Q3W EVERY 3 WEEKS (DOSE FORM: 230)
     Route: 042
     Dates: start: 20160108, end: 20160405
  37. TRASTUZUMAB [Suspect]
     Active Substance: TRASTUZUMAB
     Dosage: 444 MG, EVERY 1 WEEK (DOSE FORM: 230; 148 MILLIGRAM, 3XW/ START DATE: 10-AUG-2016)
     Route: 042
     Dates: end: 20170419
  38. TRASTUZUMAB [Suspect]
     Active Substance: TRASTUZUMAB
     Dosage: 444 MG, EVERY 1 WEEK (DOSE FORM: 230; 148 MILLIGRAM, 3XW/ START DATE: 10-AUG-2016)
     Route: 042
     Dates: end: 20170419
  39. TRASTUZUMAB [Suspect]
     Active Substance: TRASTUZUMAB
     Dosage: 444 MG, EVERY 1 WEEK (DOSE FORM: 230; 148 MILLIGRAM, 3XW/ START DATE: 10-AUG-2016)
     Route: 042
     Dates: end: 20170419
  40. TRASTUZUMAB [Suspect]
     Active Substance: TRASTUZUMAB
     Dosage: 300 MILLIGRAM, EVERY 3 WEEKS (300 MG, Q3W)
     Route: 042
     Dates: start: 20160106, end: 20160505
  41. TRASTUZUMAB [Suspect]
     Active Substance: TRASTUZUMAB
     Dosage: 300 MG
     Route: 042
  42. TRASTUZUMAB [Suspect]
     Active Substance: TRASTUZUMAB
     Dosage: 300 MG, EVERY 2 WEEKS (300 MILLIGRAM, Q3W/ START DATE: 03-JUN-2015
     Route: 042
     Dates: start: 20150603, end: 20150828
  43. TRASTUZUMAB [Suspect]
     Active Substance: TRASTUZUMAB
     Dosage: 444 MG, 1/WEEK (148 MILLIGRAM, 3XW/ START DATE: 10-AUG-2016)
     Route: 042
  44. TRASTUZUMAB [Suspect]
     Active Substance: TRASTUZUMAB
     Dosage: 400 MILLIGRAM, 3XW/ START DATE: 13-MAY-2015
     Route: 041
     Dates: start: 20150513, end: 20150513
  45. TRASTUZUMAB [Suspect]
     Active Substance: TRASTUZUMAB
     Dosage: 184 MILLIGRAM, Q3W/ START DATE: 26-APR-2016
     Route: 042
     Dates: end: 20160720
  46. TRASTUZUMAB [Suspect]
     Active Substance: TRASTUZUMAB
     Dosage: 825 MG, 1/WEEK (184 MILLIGRAM, Q3W/ START DATE: 26-APR-2016)
     Route: 042
     Dates: end: 20151211
  47. TRASTUZUMAB [Suspect]
     Active Substance: TRASTUZUMAB
     Dosage: 900 MG, EVERY 3 WEEKS (300 MILLIGRAM, 3XW/ START DATE: 03-JUN-2015)
     Route: 042
     Dates: start: 20150603, end: 20150604
  48. TRASTUZUMAB [Suspect]
     Active Substance: TRASTUZUMAB
     Dosage: 480 MG, 1/WEEK(160 MILLIGRAM, Q3W/ START DATE: 10-MAY-2017)
     Route: 042
     Dates: start: 20170510, end: 20180808
  49. TRASTUZUMAB [Suspect]
     Active Substance: TRASTUZUMAB
     Dosage: 444 MG, 1/WEEK; 148 MILLIGRAM, 3XW/ START DATE: 10-AUG-2016
     Route: 042
     Dates: start: 20160810, end: 20170419
  50. TRASTUZUMAB [Suspect]
     Active Substance: TRASTUZUMAB
     Dosage: 400 MILLIGRAM, QWK
     Route: 042
     Dates: start: 20170510, end: 20180808
  51. DOCETAXEL [Suspect]
     Active Substance: DOCETAXEL
     Indication: HER2 positive breast cancer
     Dosage: 86 MILLIGRAM, EVERY 3 WEEKS (86 MG, Q3W) DOSE FORM: 230; MOST RECENT DOSE ON 18/SEP/2015; CUMULATIVE
     Route: 042
     Dates: start: 20150828, end: 20150918
  52. DOCETAXEL [Suspect]
     Active Substance: DOCETAXEL
     Indication: Breast cancer metastatic
     Dosage: 92 MILLIGRAM, EVERY 3 WEEKS (92 MG, TIW); DOSE FORM: 230; CUMULATIVE DOSE: 276.0 MG
     Route: 042
     Dates: start: 20150514, end: 20150715
  53. DOCETAXEL [Suspect]
     Active Substance: DOCETAXEL
     Dosage: 86 MILLIGRAM, EVERY 3 WEEKS; DOSE FORM: 230; MOST RECENT DOSE ON 18/SEP/2015; CUMULATIVE DOSE: 176.0
     Route: 042
     Dates: start: 20150828, end: 20150918
  54. DOCETAXEL [Suspect]
     Active Substance: DOCETAXEL
     Dosage: 92 MILLIGRAM, EVERY 3 WEEKS; DOSE FORM: 230; CUMULATIVE DOSE: 276.0 MG
     Route: 042
     Dates: start: 20150514, end: 20150715
  55. DOCETAXEL [Suspect]
     Active Substance: DOCETAXEL
     Dosage: 86 MILLIGRAM, EVERY 3 WEEKS (86 MG, Q3W); DOSE FORM: 16; CUMULATIVE DOSE: 176.619 MG
     Route: 042
     Dates: start: 20150828, end: 20150918
  56. DOCETAXEL [Suspect]
     Active Substance: DOCETAXEL
     Dosage: 92 MILLIGRAM, EVERY 3 WEEKS (92 MG, Q3W); DOSE FORM: 16; CUMULATIVE DOSE: 176.619 MG
     Route: 042
     Dates: start: 20150514, end: 20150715
  57. DOCETAXEL [Suspect]
     Active Substance: DOCETAXEL
     Dosage: 368 MILLIGRAM
     Route: 065
  58. DOCETAXEL [Suspect]
     Active Substance: DOCETAXEL
     Dosage: 86 MILLIGRAM, EVERY 3 WEEKS (86 MG, Q3W); CUMULATIVE DOSE: 368 MG
     Route: 065
     Dates: start: 20150828, end: 20150918
  59. DOCETAXEL [Suspect]
     Active Substance: DOCETAXEL
     Dosage: 92 MILLIGRAM, EVERY 3 WEEKS (92 MG, TIW); CUMULATIVE DOSE: 368 MG
     Route: 065
     Dates: start: 20150514, end: 20150715
  60. DOCETAXEL [Suspect]
     Active Substance: DOCETAXEL
     Dosage: 368 MILLIGRAM; CUMULATIVE DOSE: 362 MG
     Route: 065
  61. EXEMESTANE [Suspect]
     Active Substance: EXEMESTANE
     Indication: HER2 positive breast cancer
     Dosage: 25 MILLIGRAM DAILY; 25 MILLIGRAM, QD
     Route: 048
     Dates: start: 20151013, end: 201604
  62. EXEMESTANE [Suspect]
     Active Substance: EXEMESTANE
     Indication: Breast cancer metastatic
  63. EXEMESTANE [Suspect]
     Active Substance: EXEMESTANE
     Indication: HER2 positive breast cancer
     Dosage: 25 MILLIGRAM, QD (CUMULATIVE DOSE: 2225 MG)
     Route: 048
     Dates: start: 20151013, end: 201604
  64. HERCEPTIN [Suspect]
     Active Substance: TRASTUZUMAB
     Indication: Breast cancer metastatic
     Dosage: 400 MILLIGRAM, EVERY 3 WEEKS (400 MG, Q3W (LOADING DOSE)
     Route: 042
     Dates: start: 20150513, end: 20150513
  65. HERCEPTIN [Suspect]
     Active Substance: TRASTUZUMAB
     Dosage: 275 MILLIGRAM, EVERY 3 WEEKS (275 MG, UNK)
     Route: 042
     Dates: start: 20150818, end: 20151211
  66. HERCEPTIN [Suspect]
     Active Substance: TRASTUZUMAB
     Dosage: 300 MILLIGRAM, EVERY 3 WEEKS (300 MG, Q3W)
     Route: 042
     Dates: start: 20160108, end: 20160405
  67. HERCEPTIN [Suspect]
     Active Substance: TRASTUZUMAB
     Dosage: 300 MILLIGRAM, EVERY 3 WEEKS (300 MG, Q3W)
     Route: 042
     Dates: start: 20150603, end: 20150804
  68. HERCEPTIN [Suspect]
     Active Substance: TRASTUZUMAB
     Dosage: 300 MILLIGRAM, Q3WK (CUMULATIVE DOSE: 400 MG)
     Route: 042
     Dates: start: 20160108, end: 20160405
  69. NERATINIB [Suspect]
     Active Substance: NERATINIB
     Indication: HER2 positive breast cancer
     Dosage: 240 MILLIGRAM, QD
     Route: 048
     Dates: start: 20180825, end: 201811
  70. NERATINIB [Suspect]
     Active Substance: NERATINIB
     Indication: HER2 positive breast cancer
     Dosage: 240 MILLIGRAM, QD (CUMULATIVE DOSE: 27264 MG)
     Route: 048
     Dates: start: 20180825, end: 201811
  71. PERTUZUMAB [Suspect]
     Active Substance: PERTUZUMAB
     Indication: HER2 positive breast cancer
     Dosage: 420 MILLIGRAM, TIW (EVERY 3 WEEKS; DOSE FORM: 230)
     Route: 042
     Dates: start: 20150603, end: 20150807
  72. PERTUZUMAB [Suspect]
     Active Substance: PERTUZUMAB
     Indication: Breast cancer metastatic
     Dosage: 420 MG, Q3W
     Route: 042
  73. PERTUZUMAB [Suspect]
     Active Substance: PERTUZUMAB
     Indication: Breast cancer metastatic
     Dosage: 420 MILLIGRAM, TIW; DOSE FORM: 230; CUMULATIVE DOSE: 1260 MG
     Route: 042
     Dates: start: 20150603, end: 20150807
  74. PERTUZUMAB [Suspect]
     Active Substance: PERTUZUMAB
     Dosage: 420 MILLIGRAM, TIW; DOSE FORM: 230; CUMULATIVE DOSE: 1260 MG
     Route: 042
     Dates: start: 20150603, end: 20150807
  75. PERTUZUMAB [Suspect]
     Active Substance: PERTUZUMAB
     Indication: HER2 positive breast cancer
     Dosage: 420 MG, Q3W CUMULATIVE DOSE: 420 MG
     Route: 042
  76. PERTUZUMAB [Suspect]
     Active Substance: PERTUZUMAB
     Indication: Breast cancer metastatic
     Dosage: 420 MG EVERY 3 WEEKS (420 MG, Q3W)
     Route: 042
     Dates: start: 20150603, end: 20150807
  77. ADO-TRASTUZUMAB EMTANSINE [Suspect]
     Active Substance: ADO-TRASTUZUMAB EMTANSINE
     Indication: Breast cancer metastatic
     Dosage: 184 MG EVERY 3 WEEKS (184 MG, Q3W)
     Route: 042
     Dates: start: 20160426, end: 20160720
  78. ADO-TRASTUZUMAB EMTANSINE [Suspect]
     Active Substance: ADO-TRASTUZUMAB EMTANSINE
     Dosage: 160 MG EVERY 3 WEEKS (184 MG, Q3W); DOSE FORM: 230; METASTATIC BREAST CANCER; CUMULATIVE DOSE: 5059.
     Route: 042
     Dates: start: 20170510, end: 20180808
  79. ADO-TRASTUZUMAB EMTANSINE [Suspect]
     Active Substance: ADO-TRASTUZUMAB EMTANSINE
     Dosage: 148MG EVERY 3 WEEKS (148 MG, Q3W)
     Route: 042
     Dates: start: 20160810, end: 20170419
  80. ADO-TRASTUZUMAB EMTANSINE [Suspect]
     Active Substance: ADO-TRASTUZUMAB EMTANSINE
     Dosage: 160 MG EVERY 3 WEEKS (184 MG, Q3W); DOSE FORM: 230; METASTATIC BREAST CANCER; CUMULATIVE DOSE: 5059.
     Route: 042
     Dates: start: 20170510, end: 20180808
  81. ADO-TRASTUZUMAB EMTANSINE [Suspect]
     Active Substance: ADO-TRASTUZUMAB EMTANSINE
     Dosage: 184 MG EVERY 3 WEEKS (184 MG, Q3W); DOSE FORM: 230; 184 MILLIGRAM, Q3W/ START DATE: 26-APR-2016; CUM
     Route: 042
     Dates: start: 20160426, end: 20160720
  82. ADO-TRASTUZUMAB EMTANSINE [Suspect]
     Active Substance: ADO-TRASTUZUMAB EMTANSINE
     Dosage: 148 MG EVERY 3 WEEKS (DOSE FORM: 230; 184 MILLIGRAM, Q3W/ START DATE: 24-APR-2016; CUMULATIVE DOSE:
     Route: 042
     Dates: start: 20160424, end: 20160720
  83. ADO-TRASTUZUMAB EMTANSINE [Suspect]
     Active Substance: ADO-TRASTUZUMAB EMTANSINE
     Dosage: 148 MG EVERY 3 WEEKS (DOSE FORM: 230; 184 MILLIGRAM, Q3W/ START DATE: 24-APR-2016; CUMULATIVE DOSE:
     Route: 042
     Dates: start: 20160424, end: 20160720
  84. ADO-TRASTUZUMAB EMTANSINE [Suspect]
     Active Substance: ADO-TRASTUZUMAB EMTANSINE
     Dosage: 148 MG EVERY 2 WEEKS (DOSE FORM: 230; 148 MILLIGRAM, Q3W/ START DATE: 10-AUG-2016; CUMULATIVE DOSE:
     Route: 042
     Dates: start: 20160810, end: 20170419
  85. ADO-TRASTUZUMAB EMTANSINE [Suspect]
     Active Substance: ADO-TRASTUZUMAB EMTANSINE
     Dosage: 148 MG EVERY 2 WEEKS (DOSE FORM: 230; 148 MILLIGRAM, Q3W/ START DATE: 10-AUG-2016; CUMULATIVE DOSE:
     Route: 042
     Dates: start: 20160810, end: 20170419
  86. ADO-TRASTUZUMAB EMTANSINE [Suspect]
     Active Substance: ADO-TRASTUZUMAB EMTANSINE
     Indication: Breast cancer metastatic
     Dosage: 148 MILLIGRAM, Q3W/ START DATE: 10-AUG-2016 (DOSE FORM: 230)
     Route: 042
     Dates: end: 20170419
  87. ADO-TRASTUZUMAB EMTANSINE [Suspect]
     Active Substance: ADO-TRASTUZUMAB EMTANSINE
     Dosage: 184 MILLIGRAM, Q3W/ START DATE: 26-APR-2016 (DOSE FORM: 230)
     Route: 042
     Dates: end: 20160720
  88. ADO-TRASTUZUMAB EMTANSINE [Suspect]
     Active Substance: ADO-TRASTUZUMAB EMTANSINE
     Dosage: 160 MILLIGRAM, Q3W/ START DATE: 10-MAY-2017 (DOSE FORM: 230)
     Route: 042
     Dates: end: 20180808
  89. ADO-TRASTUZUMAB EMTANSINE [Suspect]
     Active Substance: ADO-TRASTUZUMAB EMTANSINE
     Dosage: 148 MG, Q3W (DOSE FORM: 230)
     Route: 042
     Dates: start: 20160810, end: 20170419
  90. ADO-TRASTUZUMAB EMTANSINE [Suspect]
     Active Substance: ADO-TRASTUZUMAB EMTANSINE
     Dosage: 184 MG, Q3W (DOSE FORM: 230)
     Route: 042
     Dates: start: 20160426, end: 20160720
  91. ADO-TRASTUZUMAB EMTANSINE [Suspect]
     Active Substance: ADO-TRASTUZUMAB EMTANSINE
     Dosage: 184 MILLIGRAM, Q3W/ START DATE: 24-APR-2016 (DOSE FORM: 230)
     Route: 042
     Dates: end: 20160720
  92. ADO-TRASTUZUMAB EMTANSINE [Suspect]
     Active Substance: ADO-TRASTUZUMAB EMTANSINE
     Dosage: 160 MG, Q3W (DOSE FORM: 230)
     Route: 042
     Dates: start: 20170510, end: 20180808
  93. AMOXICILLIN [Concomitant]
     Active Substance: AMOXICILLIN
     Indication: Infection
     Dosage: 500 MG, EVERY 1 DAY (DOSE FORM: 245)
     Route: 048
     Dates: start: 20150804, end: 20150810
  94. AMOXICILLIN [Concomitant]
     Active Substance: AMOXICILLIN
     Dosage: UNK; ;
  95. AMOXICILLIN [Concomitant]
     Active Substance: AMOXICILLIN
     Dosage: 625 MG
     Route: 048
     Dates: start: 20150804, end: 20150810
  96. AMOXICILLIN [Concomitant]
     Active Substance: AMOXICILLIN
     Dosage: 625 MG
     Route: 048
     Dates: start: 20180923, end: 20180930
  97. AMOXYCILLIN [AMOXICILLIN] [Concomitant]
     Indication: Infection
     Dosage: 500 MILLIGRAM, QD
     Route: 048
     Dates: start: 20150804, end: 20150810
  98. AMOXYCILLIN [AMOXICILLIN] [Concomitant]
     Dosage: 625 MILLIGRAM; (DOSE FORM: 245)
     Route: 042
     Dates: start: 20180923, end: 20180930
  99. AMOXYCILLIN [AMOXICILLIN] [Concomitant]
     Dosage: 1875 MG, QD (DOSE FORM: 245)
     Route: 048
     Dates: start: 20150804, end: 20150810
  100. AMOXYCILLIN [AMOXICILLIN] [Concomitant]
     Dosage: 1500 MILLIGRAM, QD
     Route: 048
     Dates: start: 20150804, end: 20150810
  101. AMOXYCILLIN [AMOXICILLIN] [Concomitant]
     Indication: Infection
     Dosage: 625 MILLIGRAM;
     Route: 048
     Dates: start: 20150804, end: 20150810
  102. AMOXYCILLIN [AMOXICILLIN] [Concomitant]
     Dosage: 625 MILLIGRAM;
     Route: 048
     Dates: start: 20180923, end: 20180930
  103. AMOXYCILLIN [AMOXICILLIN] [Concomitant]
     Dosage: 500 MG, QD (DOSE FORM: 245, CUMULATIVE DOSE: 61500 MG)
     Route: 048
     Dates: start: 20150804, end: 20150810
  104. AMOXYCILLIN [AMOXICILLIN] [Concomitant]
     Dosage: 1500 MILLIGRAM, QD (DOSE FORM: 245; CUMULATIVE DOSE 61500 MG)
     Route: 048
     Dates: start: 20150804, end: 20150810
  105. AMOXYCILLIN [AMOXICILLIN] [Concomitant]
     Dosage: 500 MILLIGRAM, QD (DOSE FORM: 2450; CUMULATIVE DOSE: 61500MG)
     Route: 048
     Dates: start: 20150804, end: 20150810
  106. AMOXICILLIN\CLAVULANATE POTASSIUM [Concomitant]
     Active Substance: AMOXICILLIN\CLAVULANATE POTASSIUM
  107. AMOXICILLIN\CLAVULANATE POTASSIUM [Concomitant]
     Active Substance: AMOXICILLIN\CLAVULANATE POTASSIUM
     Dosage: 625 MG
     Route: 048
     Dates: start: 20180923, end: 20180930
  108. AMOXICILLIN\CLAVULANATE POTASSIUM [Concomitant]
     Active Substance: AMOXICILLIN\CLAVULANATE POTASSIUM
     Dosage: 625 MG
     Route: 048
     Dates: start: 20150804, end: 20150810
  109. BUDESONIDE [Concomitant]
     Active Substance: BUDESONIDE
     Indication: Product used for unknown indication
     Dosage: 9 MILLIGRAM, UNK (DOSE FORM: 245)
     Route: 048
     Dates: start: 20181025, end: 20181114
  110. BUDESONIDE [Concomitant]
     Active Substance: BUDESONIDE
     Indication: Product used for unknown indication
     Dosage: 9 MILLIGRAM, UNK; (DOSE FORM: 245)
     Route: 048
     Dates: start: 20181025, end: 20181114
  111. 3M CAVILON ANTIFUNGAL [Concomitant]
     Active Substance: MICONAZOLE NITRATE
     Indication: Prophylaxis
  112. 3M CAVILON ANTIFUNGAL [Concomitant]
     Active Substance: MICONAZOLE NITRATE
     Dosage: 92 GRAM/ START DATE: 04-AUG-2015
     Route: 061
  113. CALAMINE [Concomitant]
     Active Substance: CALAMINE\FERRIC OXIDE RED\ZINC OXIDE
     Indication: Dry skin
     Dosage: UNK
     Route: 061
     Dates: start: 201508, end: 201601
  114. CALAMINE [Concomitant]
     Active Substance: CALAMINE\FERRIC OXIDE RED\ZINC OXIDE
     Dosage: UNK
     Route: 061
     Dates: start: 201508, end: 201601
  115. CALAMINE [Concomitant]
     Active Substance: CALAMINE\FERRIC OXIDE RED\ZINC OXIDE
     Dosage: UNK; ;
     Route: 061
     Dates: start: 201508, end: 201601
  116. CALAMINE [Concomitant]
     Active Substance: CALAMINE\FERRIC OXIDE RED\ZINC OXIDE
     Dosage: UNK; ;
     Route: 061
     Dates: start: 201508, end: 201601
  117. CALAMINE [Concomitant]
     Active Substance: CALAMINE\FERRIC OXIDE RED\ZINC OXIDE
     Dosage: UNK
     Route: 061
  118. CALAMINE [CALAMINE;GLYCEROL;ZINC OXIDE] [Concomitant]
     Indication: Dry skin
     Dosage: UNK (DOSE FORM: LOTION)
     Route: 061
     Dates: start: 201508, end: 201601
  119. CALAMINE [CALAMINE;GLYCEROL;ZINC OXIDE] [Concomitant]
     Indication: Product used for unknown indication
  120. CALAMINE [CALAMINE;GLYCEROL;ZINC OXIDE] [Concomitant]
     Indication: Dry skin
     Dosage: UNK
     Route: 061
     Dates: start: 201508, end: 201601
  121. CETIRIZINE [Concomitant]
     Active Substance: CETIRIZINE HYDROCHLORIDE
     Indication: Product used for unknown indication
     Dosage: 1 DOSAGE FORM, QD (1 OT, QD)
     Route: 048
     Dates: start: 20150825, end: 20150827
  122. CETIRIZINE [Concomitant]
     Active Substance: CETIRIZINE HYDROCHLORIDE
     Dosage: 1 MG, QD
     Route: 048
     Dates: start: 20180825, end: 20180827
  123. CETIRIZINE [Concomitant]
     Active Substance: CETIRIZINE HYDROCHLORIDE
     Dosage: 10 MG, QD (DOSE FORM: 245)
     Route: 048
     Dates: start: 20180825, end: 20180827
  124. CETIRIZINE [Concomitant]
     Active Substance: CETIRIZINE HYDROCHLORIDE
     Dosage: 10 MILLIGRAM, UNK(DOSE FORM: 245)
     Route: 048
     Dates: end: 20190406
  125. CETIRIZINE [Concomitant]
     Active Substance: CETIRIZINE HYDROCHLORIDE
     Dosage: 10 MG, QD (DOSE FORM: 245)
     Route: 048
     Dates: start: 20150805, end: 20150807
  126. CETIRIZINE [Concomitant]
     Active Substance: CETIRIZINE HYDROCHLORIDE
     Dosage: 10 MILLIGRAM, QD
     Route: 048
     Dates: start: 20150805, end: 20190406
  127. CETIRIZINE [Concomitant]
     Active Substance: CETIRIZINE HYDROCHLORIDE
     Dosage: 10 MILLIGRAM, QD
     Route: 048
     Dates: start: 20150805, end: 20190406
  128. CETIRIZINE [Concomitant]
     Active Substance: CETIRIZINE HYDROCHLORIDE
     Dosage: 10 MILLIGRAM, UNK
     Route: 048
     Dates: end: 20190406
  129. CETIRIZINE [Concomitant]
     Active Substance: CETIRIZINE HYDROCHLORIDE
     Indication: Product used for unknown indication
     Dosage: 10 MG, QD (DOSE FORM: 245)
     Route: 048
     Dates: start: 20150805, end: 20150807
  130. CETIRIZINE [Concomitant]
     Active Substance: CETIRIZINE HYDROCHLORIDE
     Dosage: 10 MG; (DOSE FORM: 245)
     Route: 048
     Dates: end: 20190406
  131. CETIRIZINE [Concomitant]
     Active Substance: CETIRIZINE HYDROCHLORIDE
     Dosage: 1 MG, QD (DOSE FORM: 245)
     Route: 048
     Dates: start: 20180825, end: 20180827
  132. CETIRIZINE [Concomitant]
     Active Substance: CETIRIZINE HYDROCHLORIDE
     Dosage: 10 MG, QD (DOSE FORM: 245)
     Route: 048
     Dates: start: 20180825, end: 20180827
  133. CETIRIZINE [Concomitant]
     Active Substance: CETIRIZINE HYDROCHLORIDE
     Dosage: 10 MG, QD (DOSE FORM: 245)
     Route: 048
     Dates: start: 20150805, end: 20190406
  134. CHLORPHENIRAMINE MALEATE [Concomitant]
     Active Substance: CHLORPHENIRAMINE MALEATE
     Indication: Pruritus
     Dosage: 10 MILLIGRAM, UNK
     Route: 042
     Dates: start: 20150807, end: 20150807
  135. CLAVULANIC ACID [Concomitant]
     Active Substance: CLAVULANIC ACID
     Indication: Infection
     Dosage: 125 MILLIGRAM, QD (DOSE FORM: 245)
     Route: 048
     Dates: start: 20150804, end: 20150810
  136. CLAVULANIC ACID [Concomitant]
     Active Substance: CLAVULANIC ACID
     Dosage: 125 MILLIGRAM, QD  (DOSE FORM: 245)
     Route: 048
     Dates: start: 20150804, end: 20150810
  137. AMOXICILLIN\CLAVULANATE POTASSIUM [Concomitant]
     Active Substance: AMOXICILLIN\CLAVULANATE POTASSIUM
     Indication: Product used for unknown indication
     Dosage: 1875 MILLIGRAM, QD
     Route: 048
     Dates: start: 20150804, end: 20150810
  138. AMOXICILLIN\CLAVULANATE POTASSIUM [Concomitant]
     Active Substance: AMOXICILLIN\CLAVULANATE POTASSIUM
     Dosage: 625 MG (DOSE FORM: 245)
     Route: 048
     Dates: start: 20180923, end: 20180930
  139. AMOXICILLIN\CLAVULANATE POTASSIUM [Concomitant]
     Active Substance: AMOXICILLIN\CLAVULANATE POTASSIUM
     Dosage: 625 MG (DOSE FORM: 245)
     Route: 048
     Dates: start: 20150804, end: 20150810
  140. AMOXICILLIN\CLAVULANATE POTASSIUM [Concomitant]
     Active Substance: AMOXICILLIN\CLAVULANATE POTASSIUM
     Dosage: 625 MILLIGRAM, UNK
     Route: 042
     Dates: start: 20180923, end: 20180930
  141. AMOXICILLIN\CLAVULANATE POTASSIUM [Concomitant]
     Active Substance: AMOXICILLIN\CLAVULANATE POTASSIUM
     Indication: Product used for unknown indication
     Dosage: 1875 MG, QD (DOSE FORM: 245)
     Route: 048
     Dates: start: 20150804, end: 20150810
  142. AMOXICILLIN\CLAVULANATE POTASSIUM [Concomitant]
     Active Substance: AMOXICILLIN\CLAVULANATE POTASSIUM
     Dosage: 625 MG; (DOSE FORM: 245)
     Route: 042
     Dates: start: 20180923, end: 20180930
  143. AMOXICILLIN\CLAVULANATE POTASSIUM [Concomitant]
     Active Substance: AMOXICILLIN\CLAVULANATE POTASSIUM
     Dosage: 625 MG
     Route: 048
     Dates: start: 20150804, end: 20150810
  144. AMOXICILLIN\CLAVULANATE POTASSIUM [Concomitant]
     Active Substance: AMOXICILLIN\CLAVULANATE POTASSIUM
     Dosage: 625 MG, UNK
     Route: 048
     Dates: start: 20180923, end: 20180930
  145. CYCLIZINE [Concomitant]
     Active Substance: CYCLIZINE
     Indication: Product used for unknown indication
     Dosage: 50 MILLIGRAM, 50 MG
     Route: 058
     Dates: start: 201901, end: 20190406
  146. DEXAMETHASONE [Concomitant]
     Active Substance: DEXAMETHASONE
     Indication: Product used for unknown indication
     Dosage: 2 MILLIGRAM/ SATRT DATE:02-OCT-2018
     Route: 048
     Dates: start: 20181002, end: 20181212
  147. DEXAMETHASONE [Concomitant]
     Active Substance: DEXAMETHASONE
     Dosage: 8 MILLIGRAM, QD
     Route: 048
     Dates: start: 20150803, end: 20150805
  148. DEXAMETHASONE [Concomitant]
     Active Substance: DEXAMETHASONE
     Dosage: 2 MG, QD (DOSE FORM: 245; THREE DAYS PRIOR TO CHEMOTHERAPY; CUMULATIVE DOSE 36 MG)
     Route: 048
     Dates: start: 20150803, end: 20150805
  149. DEXAMETHASONE [Concomitant]
     Active Substance: DEXAMETHASONE
     Dosage: 5 MILLILITER, QD (LIQUID; CUMULATIVE DOSE: 10 ML)
     Route: 047
     Dates: start: 20150714, end: 20150923
  150. DEXAMETHASONE [Concomitant]
     Active Substance: DEXAMETHASONE
     Dosage: 20 MILLILITER, QD (LIQUID)
     Route: 047
     Dates: start: 20150714, end: 20150923
  151. DEXAMETHASONE [Concomitant]
     Active Substance: DEXAMETHASONE
     Dosage: 4 MILLIGRAM, QD
     Route: 048
     Dates: start: 20150803, end: 20150805
  152. DEXAMETHASONE [Concomitant]
     Active Substance: DEXAMETHASONE
     Dosage: 5 MILLILITER, QD (LIQUID)
     Route: 047
     Dates: start: 20150714, end: 20150923
  153. DEXAMETHASONE [Concomitant]
     Active Substance: DEXAMETHASONE
     Dosage: 2 MILLIGRAM THREE DAYS PRIOR TO CHEMOTHERAPY
     Route: 048
     Dates: start: 20150803, end: 20150805
  154. DEXAMETHASONE [Concomitant]
     Active Substance: DEXAMETHASONE
     Indication: Product used for unknown indication
     Dosage: 8 MG, QD (DOSE FORM: 245)
     Route: 048
     Dates: start: 20150803, end: 20150805
  155. DEXAMETHASONE [Concomitant]
     Active Substance: DEXAMETHASONE
     Dosage: 2 MG (DOSE FORM: 245)
     Route: 048
     Dates: start: 20150803, end: 20150805
  156. DEXAMETHASONE [Concomitant]
     Active Substance: DEXAMETHASONE
     Dosage: 5 ML, QD (DOSE FORM: 245)
     Route: 047
     Dates: start: 20150714, end: 20150923
  157. DEXAMETHASONE [Concomitant]
     Active Substance: DEXAMETHASONE
     Dosage: 2 MG; (DOSE FORM: 245)
     Route: 048
     Dates: start: 20181002, end: 20181212
  158. DOMPERIDONE [Concomitant]
     Active Substance: DOMPERIDONE
     Indication: Prophylaxis
     Dosage: 10 MILLIGRAM, QD (DOSE FORM: 245)
     Route: 048
     Dates: start: 20150803, end: 20150805
  159. DOMPERIDONE [Concomitant]
     Active Substance: DOMPERIDONE
     Dosage: 30 MILLIGRAM, QD
     Route: 048
     Dates: start: 20150803
  160. DOMPERIDONE [Concomitant]
     Active Substance: DOMPERIDONE
     Indication: Prophylaxis
     Dosage: 30 MG, QD (DOSE FORM: 245)
     Route: 048
     Dates: start: 20150803
  161. DOMPERIDONE [Concomitant]
     Active Substance: DOMPERIDONE
     Dosage: 10 MG, QD (DOSE FORM: 245)
     Route: 048
     Dates: start: 20150803, end: 20150805
  162. GLYCOPYRROLATE [Concomitant]
     Active Substance: GLYCOPYRROLATE
     Indication: Product used for unknown indication
     Dosage: 200 MICROGRAM PRN (AS NEEDED)
     Route: 058
     Dates: start: 201901, end: 20190406
  163. GLYCOPYRROLATE [Concomitant]
     Active Substance: GLYCOPYRROLATE
     Dosage: 200 MICROGRAM, UNK;
     Route: 058
     Dates: start: 201901, end: 20190406
  164. HYDROCORTISONE [Concomitant]
     Active Substance: HYDROCORTISONE
     Indication: Pruritus
     Dosage: 100 MILLIGRAM, 100 MG
     Route: 042
     Dates: start: 20150807, end: 20150807
  165. HYDROCORTISONE [Concomitant]
     Active Substance: HYDROCORTISONE
     Dosage: 100 MG;
     Route: 042
     Dates: start: 20150807, end: 20150807
  166. HYPROMELLOSES [Concomitant]
     Active Substance: HYPROMELLOSES
     Indication: Lacrimation increased
     Dosage: UNK, 0.33 QD
     Route: 047
     Dates: end: 20160401
  167. HYPROMELLOSES [Concomitant]
     Active Substance: HYPROMELLOSES
     Dosage: 3 DOSAGE FORM, QD (3 DF, QD) (3 OT, QD)
     Route: 047
     Dates: start: 20160401, end: 20160401
  168. HYPROMELLOSES [Concomitant]
     Active Substance: HYPROMELLOSES
     Dosage: UNK, 0.33
     Route: 047
     Dates: end: 20160401
  169. HYPROMELLOSES [Concomitant]
     Active Substance: HYPROMELLOSES
     Dosage: UNK
     Route: 047
     Dates: start: 20160401
  170. HYPROMELLOSES [Concomitant]
     Active Substance: HYPROMELLOSES
     Dosage: 3 DOSAGE FORM, QD (3 OT, QD)
     Route: 047
     Dates: end: 20160401
  171. HYPROMELLOSES [Concomitant]
     Active Substance: HYPROMELLOSES
     Dosage: 3 DF, QD
     Route: 047
     Dates: end: 20160401
  172. LACTULOSE [Concomitant]
     Active Substance: LACTULOSE
     Indication: Product used for unknown indication
     Dosage: 20 MILLILITER, OD (20 ML, M3)
     Route: 048
     Dates: start: 201901, end: 20190406
  173. LACTULOSE [Concomitant]
     Active Substance: LACTULOSE
     Dosage: UNK
  174. LANSOPRAZOLE [Concomitant]
     Active Substance: LANSOPRAZOLE
     Indication: Product used for unknown indication
     Dosage: 30 MG, QD (DOSE FORM: 245)
     Route: 048
     Dates: start: 20181002, end: 201908
  175. LANSOPRAZOLE [Concomitant]
     Active Substance: LANSOPRAZOLE
     Dosage: 30 UNK; (DOSE FORM: 245)
     Route: 048
     Dates: start: 20181002, end: 201908
  176. LANSOPRAZOLE [Concomitant]
     Active Substance: LANSOPRAZOLE
     Dosage: UNK
  177. LANSOPRAZOLE [Concomitant]
     Active Substance: LANSOPRAZOLE
     Indication: Abdominal discomfort
     Dosage: 30 MILLIGRAM, UNK
     Route: 048
     Dates: start: 20181002, end: 201908
  178. LANSOPRAZOLE [Concomitant]
     Active Substance: LANSOPRAZOLE
     Indication: Product used for unknown indication
     Dosage: 30 MILLIGRAM, QD (DOSE FORM: 245)
     Route: 048
     Dates: start: 20181002, end: 201908
  179. LANSOPRAZOLE [Concomitant]
     Active Substance: LANSOPRAZOLE
     Dosage: 30 MG, QD
     Route: 048
     Dates: start: 20181002, end: 201901
  180. LANSOPRAZOLE [Concomitant]
     Active Substance: LANSOPRAZOLE
     Dosage: 30 MILLIGRAM, QD
     Route: 048
     Dates: start: 20181002, end: 201908
  181. LANSOPRAZOLE [Concomitant]
     Active Substance: LANSOPRAZOLE
     Dosage: 30 MILLIGRAM, UNK (GENERICS UK LANSOPRAZOLE)
     Route: 048
     Dates: start: 20181002, end: 201908
  182. LEVETIRACETAM [Concomitant]
     Active Substance: LEVETIRACETAM
     Indication: Product used for unknown indication
     Dosage: 500 MILLIGRAM, QD
     Route: 048
     Dates: start: 20180918, end: 20190406
  183. LEVETIRACETAM [Concomitant]
     Active Substance: LEVETIRACETAM
     Dosage: 1000 MILLIGRAM, QD (DOSE FORM: 245; CUMULATIVE DOSE: 72041.66 MG)
     Route: 048
     Dates: start: 20180918, end: 20190406
  184. LEVETIRACETAM [Concomitant]
     Active Substance: LEVETIRACETAM
     Dosage: 500 MILLIGRAM, PER 0.5 DAY
     Route: 048
     Dates: start: 20180918, end: 20190406
  185. LEVETIRACETAM [Concomitant]
     Active Substance: LEVETIRACETAM
     Dosage: 500 MILLIGRAM, QD (DOSE FORM: 245)
     Route: 048
     Dates: start: 20180918, end: 20190406
  186. LEVETIRACETAM [Concomitant]
     Active Substance: LEVETIRACETAM
     Dosage: 500 MG, EVERY 0.5 DAYS
     Route: 048
     Dates: start: 20180918, end: 20190406
  187. LOPERAMIDE [Concomitant]
     Active Substance: LOPERAMIDE
     Indication: Product used for unknown indication
     Dosage: 2 MILLIGRAM, UNK (DOSE FORM: 245)
     Route: 048
     Dates: start: 20181025, end: 20190406
  188. LOPERAMIDE [Concomitant]
     Active Substance: LOPERAMIDE
     Indication: Product used for unknown indication
     Dosage: 2 MG (DOSE FORM:245)
     Route: 048
     Dates: start: 20181025, end: 20190406
  189. LORAZEPAM [Concomitant]
     Active Substance: LORAZEPAM
     Indication: Insomnia
     Dosage: 2 MILLIGRAM, UNK
     Route: 042
     Dates: start: 20180917, end: 20180918
  190. LORAZEPAM [Concomitant]
     Active Substance: LORAZEPAM
     Indication: Panic attack
     Dosage: 0.5 MG (DOSE FORM: 245)
     Route: 048
     Dates: start: 20160830, end: 20190406
  191. LORAZEPAM [Concomitant]
     Active Substance: LORAZEPAM
     Dosage: 0.5 MG (DOSE FORM: 245)
     Route: 048
     Dates: start: 20160830, end: 20190406
  192. LORAZEPAM [Concomitant]
     Active Substance: LORAZEPAM
     Dosage: 0.5 MILLIGRAM, UNK
     Route: 048
     Dates: start: 20160830, end: 20190406
  193. LORAZEPAM [Concomitant]
     Active Substance: LORAZEPAM
     Indication: Insomnia
     Dosage: 0.5 MILLIGRAM, UNK; (DOSE FORM: 245)
     Route: 048
     Dates: start: 20160830, end: 20190406
  194. LORAZEPAM [Concomitant]
     Active Substance: LORAZEPAM
     Indication: Panic attack
     Dosage: 2 MILLIGRAM, UNK; (DOSE FORM: 245)
     Route: 042
     Dates: start: 20180917, end: 20180918
  195. MIDAZOLAM [Concomitant]
     Active Substance: MIDAZOLAM
     Indication: Product used for unknown indication
     Dosage: 2.5 MILLIGRAM, UNK
     Route: 058
     Dates: start: 201901, end: 20190406
  196. MIDAZOLAM [Concomitant]
     Active Substance: MIDAZOLAM
     Dosage: UNK; ;
     Route: 058
     Dates: start: 201901, end: 20190406
  197. OMEPRAZOLE [Concomitant]
     Active Substance: OMEPRAZOLE
     Indication: Prophylaxis
     Dosage: 20 MILLIGRAM EVERY 1 DAY (DOSE FORM: 9)
     Route: 048
     Dates: start: 201901, end: 20190406
  198. OMEPRAZOLE [Concomitant]
     Active Substance: OMEPRAZOLE
     Dosage: UNK
     Route: 065
  199. OMEPRAZOLE [Concomitant]
     Active Substance: OMEPRAZOLE
     Indication: Prophylaxis
     Dosage: 20 MG; (DOSE FORM: 5)
     Route: 048
     Dates: start: 201901, end: 20190406
  200. OMEPRAZOLE [Concomitant]
     Active Substance: OMEPRAZOLE
     Dosage: 20 MG, QD
     Route: 048
     Dates: start: 201901, end: 20190406
  201. OMEPRAZOLE [Concomitant]
     Active Substance: OMEPRAZOLE
     Dosage: UNK; ;
  202. OXYCODONE [Concomitant]
     Active Substance: OXYCODONE
     Indication: Product used for unknown indication
     Dosage: 1.25 MILLIGRAM, UNK
     Route: 058
     Dates: start: 201901, end: 20190406
  203. POTASSIUM CHLORIDE [Concomitant]
     Active Substance: POTASSIUM CHLORIDE
     Indication: Product used for unknown indication
     Dosage: 2 DOSAGE FORM, QD
     Route: 048
     Dates: start: 20181120, end: 20181125
  204. POTASSIUM CHLORIDE [Concomitant]
     Active Substance: POTASSIUM CHLORIDE
     Dosage: UNK
     Route: 048
     Dates: start: 20180805, end: 20180807
  205. POTASSIUM CHLORIDE [Concomitant]
     Active Substance: POTASSIUM CHLORIDE
     Dosage: 4 DOSAGE FORM, QD
     Route: 048
     Dates: start: 20181120, end: 20181125
  206. RANITIDINE [Concomitant]
     Active Substance: RANITIDINE
     Indication: Product used for unknown indication
     Dosage: 300 MILLIGRAM, QD (PHARMACEUTICAL DOSE FORM: 245)
     Route: 048
     Dates: start: 20150805, end: 20150807
  207. RANITIDINE [Concomitant]
     Active Substance: RANITIDINE
     Dosage: 300 MILLIGRAM, QD (PHARMACEUTICAL DOSE FORM: 245)
     Route: 048
     Dates: start: 20150825
  208. RANITIDINE [Concomitant]
     Active Substance: RANITIDINE
     Dosage: 150 MILLIGRAM, QD (DOSE FORM: 245; CUMULATIVE DOSE: 3000 MG)
     Route: 048
     Dates: start: 20150805, end: 20150807
  209. RANITIDINE [Concomitant]
     Active Substance: RANITIDINE
     Dosage: 150 MILLIGRAM, QD (DOSE FORM: 245; CUMULATIVE DOSE: 6000 MG)
     Route: 048
     Dates: start: 20150825, end: 20150827
  210. RANITIDINE [Concomitant]
     Active Substance: RANITIDINE
     Dosage: 150 MG, QD (PHARMACEUTICAL DOSE FORM: 245)
     Route: 048
     Dates: start: 20150825
  211. RANITIDINE [Concomitant]
     Active Substance: RANITIDINE
     Indication: Product used for unknown indication
     Dosage: 150 MG, QD (DOSE FORM: 245)
     Route: 048
     Dates: start: 20150825
  212. RANITIDINE [Concomitant]
     Active Substance: RANITIDINE
     Dosage: 150 MG, QD (DOSE FORM: 245)
     Route: 048
     Dates: start: 20150825, end: 20150827
  213. RANITIDINE [Concomitant]
     Active Substance: RANITIDINE
     Dosage: 150 MG, QD
     Route: 048
     Dates: start: 20150805, end: 20150807
  214. SENNOSIDE B [Concomitant]
     Active Substance: SENNOSIDE B
     Indication: Constipation
     Dosage: 15 MG, 15 MILLIGRAM, UNK (DOSE FORM: 245)
     Route: 048
     Dates: start: 20160809, end: 20190406
  215. SENNOSIDE B [Concomitant]
     Active Substance: SENNOSIDE B
     Dosage: 30 MG, QD, 30 MILLIGRAM, QD (DOSE FORM: 245)
     Route: 048
     Dates: start: 20160809, end: 20190406
  216. SENNOSIDE B [Concomitant]
     Active Substance: SENNOSIDE B
     Dosage: 30 MILLIGRAM, QD (DOSE FORM: 245)
     Route: 048
     Dates: start: 20160809, end: 20190406
  217. SENNOSIDE B [Concomitant]
     Active Substance: SENNOSIDE B
     Dosage: 15 MILLIGRAM, UNK (DOSE FORM: 245)
     Route: 048
     Dates: start: 20160809, end: 20190406
  218. SENNOSIDE B [Concomitant]
     Active Substance: SENNOSIDE B
     Dosage: 15 MILLIGRAM, UNK
     Route: 048
     Dates: start: 20160809, end: 20190406
  219. SIMETHICONE (DIMETHICONE) [Concomitant]
     Active Substance: DIMETHICONE
     Dosage: UNK
  220. SIMETHICONE (DIMETHICONE) [Concomitant]
     Active Substance: DIMETHICONE
     Dosage: UNK
  221. POTASSIUM BICARBONATE\POTASSIUM CHLORIDE [Concomitant]
     Active Substance: POTASSIUM BICARBONATE\POTASSIUM CHLORIDE
     Indication: Product used for unknown indication
     Dosage: UNK (PHARMACEUTICAL DOSE FORM: 245)
     Route: 048
     Dates: start: 20180605, end: 20180607
  222. POTASSIUM BICARBONATE\POTASSIUM CHLORIDE [Concomitant]
     Active Substance: POTASSIUM BICARBONATE\POTASSIUM CHLORIDE
     Dosage: 4 DOSAGE FORM, QD (4 DF, QD, 4 DOSAGE FORM, QD); (PHARMACEUTICAL DOSE FORM: 245)
     Route: 048
     Dates: start: 20181120, end: 20181125
  223. POTASSIUM BICARBONATE\POTASSIUM CHLORIDE [Concomitant]
     Active Substance: POTASSIUM BICARBONATE\POTASSIUM CHLORIDE
     Dosage: UNK
  224. POTASSIUM BICARBONATE\POTASSIUM CHLORIDE [Concomitant]
     Active Substance: POTASSIUM BICARBONATE\POTASSIUM CHLORIDE
     Dosage: 2 NO UNIT EVERY 1 DAY (DOSE FORM: 245)
     Route: 048
     Dates: start: 20181120, end: 20181125
  225. POTASSIUM BICARBONATE\POTASSIUM CHLORIDE [Concomitant]
     Active Substance: POTASSIUM BICARBONATE\POTASSIUM CHLORIDE
     Dosage: UNK PER 0.5 DAY
     Route: 048
     Dates: start: 20181120, end: 20181125
  226. POTASSIUM BICARBONATE\POTASSIUM CHLORIDE [Concomitant]
     Active Substance: POTASSIUM BICARBONATE\POTASSIUM CHLORIDE
     Indication: Product used for unknown indication
  227. POTASSIUM BICARBONATE\POTASSIUM CHLORIDE [Concomitant]
     Active Substance: POTASSIUM BICARBONATE\POTASSIUM CHLORIDE
     Indication: Product used for unknown indication
     Dosage: UNK; ; (DOSE FORM: 245)
     Route: 048
     Dates: start: 20180605, end: 20180607
  228. POTASSIUM BICARBONATE\POTASSIUM CHLORIDE [Concomitant]
     Active Substance: POTASSIUM BICARBONATE\POTASSIUM CHLORIDE
     Dosage: 4 DF, QD, 4 DOSAGE FORM, QD (DOSE FORM: 245)
     Route: 048
     Dates: start: 20181120, end: 20181125
  229. POTASSIUM BICARBONATE\POTASSIUM CHLORIDE [Concomitant]
     Active Substance: POTASSIUM BICARBONATE\POTASSIUM CHLORIDE
     Dosage: UNK, EVERY 0.5 DAYS
     Route: 048
     Dates: start: 20181120, end: 20181125
  230. TICARCILLIN [Concomitant]
     Active Substance: TICARCILLIN
     Indication: Infection
     Dosage: 125 MILLIGRAM, QD (DOSE FORM: 245); 125 MG, QD
     Route: 048
     Dates: start: 20150804, end: 20150810
  231. TICARCILLIN [Concomitant]
     Active Substance: TICARCILLIN
     Dosage: 125 MILLIGRAM, QD
     Route: 048
     Dates: start: 20150804, end: 20150810

REACTIONS (34)
  - Disease progression [Fatal]
  - Off label use [Fatal]
  - Hypokalaemia [Recovered/Resolved]
  - Hypokalaemia [Recovered/Resolved]
  - Condition aggravated [Recovered/Resolved]
  - Dementia [Recovered/Resolved]
  - Amnesia [Not Recovered/Not Resolved]
  - Catheter site haemorrhage [Recovered/Resolved]
  - Chest discomfort [Recovered/Resolved]
  - Nail dystrophy [Recovered/Resolved]
  - Panic attack [Not Recovered/Not Resolved]
  - Memory impairment [Recovered/Resolved]
  - Axillary pain [Recovered/Resolved]
  - Appendicitis [Recovered/Resolved]
  - Seizure [Recovered/Resolved]
  - Seizure [Recovered/Resolved]
  - Diarrhoea [Recovered/Resolved]
  - Anaphylactic reaction [Recovering/Resolving]
  - Neuropathy peripheral [Not Recovered/Not Resolved]
  - Neuropathy peripheral [Not Recovered/Not Resolved]
  - Neuropathy peripheral [Recovered/Resolved]
  - Neuropathy peripheral [Recovered/Resolved]
  - Neuropathy peripheral [Not Recovered/Not Resolved]
  - Neuropathy peripheral [Not Recovered/Not Resolved]
  - Constipation [Not Recovered/Not Resolved]
  - Dry skin [Recovered/Resolved]
  - Ejection fraction decreased [Unknown]
  - Fatigue [Recovered/Resolved]
  - Lacrimation increased [Recovered/Resolved]
  - Pruritus [Recovered/Resolved]
  - Neuropathy peripheral [Not Recovered/Not Resolved]
  - Anaphylactic reaction [Recovered/Resolved]
  - Insomnia [Not Recovered/Not Resolved]
  - Off label use [Unknown]

NARRATIVE: CASE EVENT DATE: 20150624
